FAERS Safety Report 14838458 (Version 10)
Quarter: 2018Q4

REPORT INFORMATION
  Report Type: Spontaneous
  Country: US (occurrence: US)
  Receive Date: 20180502
  Receipt Date: 20181022
  Transmission Date: 20190204
  Serious: Yes (Hospitalization, Other)
  Sender: FDA-Public Use
  Company Number: US-ACTELION-A-NJ2018-168295

PATIENT
  Age: 70 Year
  Sex: Female

DRUGS (18)
  1. CLARITIN [Concomitant]
     Active Substance: LORATADINE
     Dosage: UNK
     Dates: start: 20180407
  2. LYRICA [Concomitant]
     Active Substance: PREGABALIN
     Dosage: UNK
     Dates: start: 20180407
  3. METFORMIN [Concomitant]
     Active Substance: METFORMIN HYDROCHLORIDE
     Dosage: UNK
     Dates: start: 20180407
  4. GLIMEPIRIDE. [Concomitant]
     Active Substance: GLIMEPIRIDE
     Dosage: UNK
     Dates: start: 20180407
  5. IPRATROPIUM BROMIDE. [Concomitant]
     Active Substance: IPRATROPIUM BROMIDE
     Dosage: UNK
     Dates: start: 20180407
  6. NARCAN [Concomitant]
     Active Substance: NALOXONE HYDROCHLORIDE
     Dosage: UNK
     Dates: start: 20180407
  7. ADVAIR HFA [Concomitant]
     Active Substance: FLUTICASONE PROPIONATE\SALMETEROL XINAFOATE
     Dosage: UNK
     Dates: start: 20180407
  8. OPSUMIT [Suspect]
     Active Substance: MACITENTAN
     Indication: PULMONARY HYPERTENSION
     Dosage: 10 MG, QD
     Route: 048
     Dates: start: 20180131, end: 20180526
  9. TYLENOL [Concomitant]
     Active Substance: ACETAMINOPHEN
     Dosage: UNK
     Dates: start: 20180407
  10. FLECAINIDE [Concomitant]
     Active Substance: FLECAINIDE
     Dosage: UNK
     Dates: start: 20180407
  11. POTASSIUM CHLORIDE. [Concomitant]
     Active Substance: POTASSIUM CHLORIDE
     Dosage: UNK
     Dates: start: 20180407
  12. XARELTO [Concomitant]
     Active Substance: RIVAROXABAN
     Dosage: UNK
     Dates: start: 20180407
  13. OXYGEN. [Concomitant]
     Active Substance: OXYGEN
     Dosage: UNK
     Dates: start: 20180407
  14. ASPIRIN. [Concomitant]
     Active Substance: ASPIRIN
     Dosage: UNK
     Dates: start: 20180407
  15. COREG [Concomitant]
     Active Substance: CARVEDILOL
     Dosage: UNK
     Dates: start: 20180407
  16. FUROSEMIDE. [Concomitant]
     Active Substance: FUROSEMIDE
     Dosage: UNK
     Dates: start: 20180407
  17. LISINOPRIL. [Concomitant]
     Active Substance: LISINOPRIL
     Dosage: UNK
     Dates: start: 20180407
  18. PROAIR HFA [Concomitant]
     Active Substance: ALBUTEROL SULFATE
     Dosage: UNK
     Dates: start: 20180407

REACTIONS (39)
  - PCO2 increased [Recovered/Resolved]
  - Thrombocytopenia [Unknown]
  - Sleep apnoea syndrome [Recovered/Resolved]
  - Somnolence [Unknown]
  - Pulmonary hypertension [Recovered/Resolved]
  - Hypertension [Unknown]
  - Encephalopathy [Recovered/Resolved]
  - Platelet count decreased [Unknown]
  - Wrist fracture [Unknown]
  - Fall [Recovered/Resolved]
  - Toxicity to various agents [Recovered/Resolved]
  - Lymphocyte count decreased [Unknown]
  - Diabetes mellitus [Unknown]
  - Swelling [Unknown]
  - Blood bicarbonate increased [Recovered/Resolved]
  - Blood creatinine increased [Unknown]
  - Hypermagnesaemia [Unknown]
  - Cardiac failure congestive [Recovered/Resolved]
  - Peripheral arterial occlusive disease [Recovered/Resolved]
  - Headache [Unknown]
  - Blood urea increased [Unknown]
  - Hyperphosphataemia [Unknown]
  - Blood sodium decreased [Unknown]
  - Mental status changes [Recovered/Resolved]
  - Respiratory failure [Recovered/Resolved]
  - Dyspnoea [Recovered/Resolved]
  - Chronic obstructive pulmonary disease [Recovered/Resolved]
  - Gastrointestinal haemorrhage [Recovering/Resolving]
  - Loss of consciousness [Unknown]
  - Oxygen saturation decreased [Recovered/Resolved]
  - Hyperkalaemia [Recovered/Resolved]
  - Treatment noncompliance [Recovered/Resolved]
  - Blood bilirubin increased [Unknown]
  - Chronic kidney disease [Unknown]
  - Blood calcium decreased [Unknown]
  - Blood potassium increased [Recovered/Resolved]
  - Renal failure [Unknown]
  - Hypercapnia [Recovered/Resolved]
  - Right ventricular failure [Unknown]

NARRATIVE: CASE EVENT DATE: 20180405
